FAERS Safety Report 9113500 (Version 1)
Quarter: 2013Q1

REPORT INFORMATION
  Report Type: Spontaneous
  Country: CN (occurrence: CN)
  Receive Date: 20130129
  Receipt Date: 20130129
  Transmission Date: 20140127
  Serious: Yes (Other)
  Sender: FDA-Public Use
  Company Number: PHHY2012CN116456

PATIENT
  Age: 56 Year
  Sex: Female
  Weight: 40 kg

DRUGS (1)
  1. BENAZEPRIL [Suspect]
     Indication: HYPERTENSION
     Dosage: 1 DF, QD
     Route: 048
     Dates: start: 20080714, end: 20090731

REACTIONS (3)
  - Neoplasm malignant [Unknown]
  - Diabetes mellitus [Unknown]
  - Cough [Recovered/Resolved]
